FAERS Safety Report 9112359 (Version 1)
Quarter: 2013Q1

REPORT INFORMATION
  Report Type: Spontaneous
  Country: US (occurrence: US)
  Receive Date: 20130219
  Receipt Date: 20130219
  Transmission Date: 20140127
  Serious: Yes (Other)
  Sender: FDA-Public Use
  Company Number: US-BRISTOL-MYERS SQUIBB COMPANY-16855330

PATIENT
  Age: 84 Year
  Sex: Female
  Weight: 49.89 kg

DRUGS (1)
  1. ABATACEPT SUBQ INJECTION 125MG/ML [Suspect]
     Indication: RHEUMATOID ARTHRITIS
     Dosage: 1 DF = 125 MG/ML, LAST INJ: 06AUG2012
     Route: 058
     Dates: start: 20120209

REACTIONS (3)
  - Pneumonia [Unknown]
  - Bronchitis [Unknown]
  - Needle issue [Unknown]
